FAERS Safety Report 25241274 (Version 1)
Quarter: 2025Q2

REPORT INFORMATION
  Report Type: Spontaneous
  Country: US (occurrence: US)
  Receive Date: 20250425
  Receipt Date: 20250425
  Transmission Date: 20250716
  Serious: No
  Sender: VERTEX
  Company Number: US-VERTEX PHARMACEUTICALS-2025-006234

PATIENT
  Age: 69 Year
  Sex: Female

DRUGS (3)
  1. SUZETRIGINE [Suspect]
     Active Substance: SUZETRIGINE
     Indication: Pain
     Route: 048
     Dates: start: 20250414
  2. SUZETRIGINE [Suspect]
     Active Substance: SUZETRIGINE
     Indication: Fibromyalgia
  3. SUZETRIGINE [Suspect]
     Active Substance: SUZETRIGINE
     Indication: Arthritis

REACTIONS (4)
  - Palpitations [Recovering/Resolving]
  - Dry mouth [Not Recovered/Not Resolved]
  - Somnolence [Not Recovered/Not Resolved]
  - Off label use [Unknown]

NARRATIVE: CASE EVENT DATE: 20250414
